FAERS Safety Report 7415065-2 (Version None)
Quarter: 2011Q2

REPORT INFORMATION
  Report Type: 
  Country: None (occurrence: None)
  Receive Date: 20110414
  Receipt Date: 20110404
  Transmission Date: 20111010
  Serious: Yes (Hospitalization)
  Sender: FDA-Public Use
  Company Number: US-US-EMD SERONO, INC.-7052233

PATIENT
  Sex: Female
  Weight: 113 kg

DRUGS (4)
  1. BENADRYL [Concomitant]
     Indication: PREMEDICATION
  2. ALEVE [Concomitant]
     Indication: PREMEDICATION
  3. EPIPEN [Concomitant]
     Indication: DYSPNOEA
  4. REBIF [Suspect]
     Indication: MULTIPLE SCLEROSIS
     Route: 058
     Dates: start: 20090306

REACTIONS (6)
  - HYPERSENSITIVITY [None]
  - DRY MOUTH [None]
  - INJECTION SITE INDURATION [None]
  - BLOOD PRESSURE INCREASED [None]
  - ASTHMA [None]
  - INJECTION SITE ERYTHEMA [None]
